FAERS Safety Report 7238120-9 (Version None)
Quarter: 2011Q1

REPORT INFORMATION
  Report Type: 
  Country: None (occurrence: None)
  Receive Date: 20110121
  Receipt Date: 20110110
  Transmission Date: 20110831
  Serious: Yes (Death)
  Sender: FDA-Public Use
  Company Number: GB-ELI_LILLY_AND_COMPANY-GB201101001940

PATIENT
  Age: 50 Year
  Sex: Female

DRUGS (3)
  1. ZYPREXA [Suspect]
     Indication: PSYCHOTIC DISORDER
     Dosage: 7.5 MG, UNK
     Route: 048
     Dates: start: 20100614
  2. PROCYCLIDINE [Concomitant]
     Dosage: 5 MG, 2/D
     Route: 048
     Dates: start: 20101024
  3. LORAZEPAM [Concomitant]
     Dosage: 1 MG, AS NEEDED
     Route: 048
     Dates: start: 20100601

REACTIONS (2)
  - PULMONARY EMBOLISM [None]
  - DYSPNOEA [None]
